FAERS Safety Report 6446642-3 (Version None)
Quarter: 2009Q4

REPORT INFORMATION
  Report Type: 
  Country: None (occurrence: None)
  Receive Date: 20091119
  Receipt Date: 20091116
  Transmission Date: 20100525
  Serious: Yes (Hospitalization)
  Sender: FDA-Public Use
  Company Number: A0817231A

PATIENT
  Age: 38 Year
  Sex: Male

DRUGS (6)
  1. LAMICTAL [Suspect]
     Indication: BIPOLAR DISORDER
     Dosage: 25MG PER DAY
     Route: 048
     Dates: start: 20090516, end: 20090520
  2. PREVACID [Concomitant]
  3. ZYPREXA [Concomitant]
  4. KLONOPIN [Concomitant]
  5. FENTANYL-100 [Concomitant]
  6. NORCO [Concomitant]

REACTIONS (9)
  - ADVERSE DRUG REACTION [None]
  - BLISTER [None]
  - HIGH FREQUENCY ABLATION [None]
  - NERVE BLOCK [None]
  - NERVE INJURY [None]
  - NEURALGIA [None]
  - OCCIPITAL NEURALGIA [None]
  - SENSORY DISTURBANCE [None]
  - STEVENS-JOHNSON SYNDROME [None]
